FAERS Safety Report 7222937 (Version 8)
Quarter: 2013Q4

REPORT INFORMATION
  Report Type: Spontaneous
  Country: US (occurrence: US)
  Receive Date: 20091218
  Receipt Date: 20131106
  Transmission Date: 20140711
  Serious: Yes (Hospitalization, Disabling, Other)
  Sender: FDA-Public Use
  Company Number: US-BAYER-200942494NA

PATIENT
  Age: 30 Year
  Sex: Female
  Weight: 76 kg

DRUGS (22)
  1. YAZ [Suspect]
     Indication: PRODUCT USED FOR UNKNOWN INDICATION
     Dates: start: 200606, end: 20080107
  2. TAMIFLU [Concomitant]
  3. TOPOMAX [Concomitant]
     Indication: MIGRAINE
     Dates: start: 1998
  4. ALEVE [Concomitant]
  5. MULTIVITAMIN [Concomitant]
     Dosage: INTERMITTENTLY ON A DAILY BASIS
  6. TYLENOL [PARACETAMOL] [Concomitant]
     Indication: PYREXIA
  7. PLAVIX [Concomitant]
  8. ACIPHEX [Concomitant]
  9. CLONAZEPAM [Concomitant]
  10. ZOCOR [Concomitant]
  11. PROTONIX [Concomitant]
  12. TYLENOL [PARACETAMOL] [Concomitant]
  13. HYDROCODONE W/APAP [Concomitant]
  14. PROPOXYPHENE NAPSYLATE W/PARACETAMOL [Concomitant]
  15. ERYTHROMYCIN [Concomitant]
     Dosage: 5 MG, UNK
  16. SULFAMETHOXAZOLE/TRIMETHOPRIM [Concomitant]
  17. PENICILLIN VK [Concomitant]
     Dosage: 500 MG, UNK
  18. PROMETHAZINE [Concomitant]
     Dosage: 200 MG, UNK
  19. PROPANOLOL [Concomitant]
     Dosage: 20 MG, UNK
  20. TOPAMAX [Concomitant]
     Dosage: 25 MG, UNK
  21. NITROFURANTOIN [Concomitant]
  22. HYDROXYZINE HCL [Concomitant]
     Dosage: 25 MG, UNK

REACTIONS (17)
  - Balance disorder [Unknown]
  - Gait disturbance [Unknown]
  - Night blindness [Unknown]
  - Cranial nerve paralysis [Unknown]
  - Asthenia [Unknown]
  - Dizziness [Unknown]
  - Headache [Unknown]
  - Diplopia [Unknown]
  - Transient ischaemic attack [None]
  - Nausea [None]
  - Vomiting [None]
  - Abdominal pain upper [None]
  - Gastroenteritis viral [None]
  - Migraine [None]
  - Cerebrovascular accident [Unknown]
  - Paresis [None]
  - Blindness [None]
